FAERS Safety Report 10187400 (Version 3)
Quarter: 2014Q3

REPORT INFORMATION
  Report Type: Spontaneous
  Country: US (occurrence: None)
  Receive Date: 20140520
  Receipt Date: 20140702
  Transmission Date: 20150326
  Serious: Yes (Hospitalization, Other)
  Sender: FDA-Public Use
  Company Number: AUR-APL-2014-05767

PATIENT
  Age: 75 Year
  Sex: Male

DRUGS (6)
  1. TOPIRAMATE ?100MG [Suspect]
     Active Substance: TOPIRAMATE
     Indication: DEMENTIA ALZHEIMER^S TYPE
  2. OLANZAPINE. [Suspect]
     Active Substance: OLANZAPINE
     Indication: DEMENTIA ALZHEIMER^S TYPE
     Dosage: 15 MG NIGHTLY AT BEDTIME
  3. AMITRIPTYLINE [Suspect]
     Active Substance: AMITRIPTYLINE
     Indication: DEMENTIA ALZHEIMER^S TYPE
     Dosage: 20 MG ONCE IN THE MORNING AND 30 MG NIGHTLY AT BEDTIME
  4. SERTRALINE 50MG (SERTRALINE) UNKNOWN, 50MG [Suspect]
     Active Substance: SERTRALINE HYDROCHLORIDE
     Indication: DEMENTIA ALZHEIMER^S TYPE
     Dosage: 50 MG ONCE IN THE MORNING
  5. CHLORDIAZEPOXIDE (CHLORDIAZEPOXIDE) (CHLORDIAZEPOXIDE) [Suspect]
     Active Substance: CHLORDIAZEPOXIDE
     Indication: DEMENTIA ALZHEIMER^S TYPE
     Dosage: 50 MG ONCE IN THE MORNING AND 75 MG NIGHTLY AT BEDTIME
  6. TRAZODONE [Suspect]
     Active Substance: TRAZODONE HYDROCHLORIDE
     Indication: DEMENTIA ALZHEIMER^S TYPE
     Dosage: 100 MG NIGHTLY AT BEDTIME

REACTIONS (5)
  - Delusion [None]
  - Delusion of replacement [None]
  - Agitation [None]
  - Aggression [None]
  - Condition aggravated [None]
